FAERS Safety Report 4890661-5 (Version None)
Quarter: 2006Q1

REPORT INFORMATION
  Report Type: 
  Country: None (occurrence: None)
  Receive Date: 20060123
  Receipt Date: 20060110
  Transmission Date: 20060701
  Serious: Yes (Other)
  Sender: FDA-Public Use
  Company Number: 2006005410

PATIENT
  Sex: Male

DRUGS (1)
  1. UNISOM [Suspect]
     Dosage: 32 SLEEPGELS ONCE, ORAL
     Route: 048
     Dates: start: 20060110, end: 20060110

REACTIONS (1)
  - HYPERSOMNIA [None]
